FAERS Safety Report 5262635-6 (Version None)
Quarter: 2007Q1

REPORT INFORMATION
  Report Type: 
  Country: None (occurrence: None)
  Receive Date: 20070312
  Receipt Date: 20070228
  Transmission Date: 20070707
  Serious: No
  Sender: FDA-Public Use
  Company Number: 2006UW08003

PATIENT
  Age: 46 Year
  Sex: Male
  Weight: 90.9 kg

DRUGS (4)
  1. SEROQUEL [Suspect]
     Indication: SLEEP DISORDER
     Route: 048
     Dates: end: 20041130
  2. CLOZARIL [Concomitant]
  3. HALDOL [Concomitant]
  4. THORAZINE [Concomitant]

REACTIONS (1)
  - DIABETES MELLITUS [None]
